FAERS Safety Report 5954834-2 (Version None)
Quarter: 2008Q4

REPORT INFORMATION
  Report Type: 
  Country: None (occurrence: None)
  Receive Date: 20081031
  Receipt Date: 20080623
  Transmission Date: 20090506
  Serious: No
  Sender: FDA-Public Use
  Company Number: 2008PV035866

PATIENT
  Age: 61 Year
  Sex: Male

DRUGS (7)
  1. SYMLIN [Suspect]
     Indication: TYPE 2 DIABETES MELLITUS
     Dosage: SC
     Route: 058
  2. SYMLIN [Suspect]
     Indication: TYPE 2 DIABETES MELLITUS
     Dosage: 90 MCG; SC;   120 MCG; SC
     Route: 058
     Dates: start: 20070101
  3. SYMLIN [Suspect]
     Indication: TYPE 2 DIABETES MELLITUS
     Dosage: 90 MCG; SC;   120 MCG; SC
     Route: 058
     Dates: start: 20070101
  4. GLIMEPIRIDE [Concomitant]
  5. ACTOPLUS MET [Concomitant]
  6. LANTUS [Concomitant]
  7. APIDRA [Concomitant]

REACTIONS (4)
  - BLOOD GLUCOSE DECREASED [None]
  - DRUG PRESCRIBING ERROR [None]
  - INJECTION SITE HAEMATOMA [None]
  - TREMOR [None]
